FAERS Safety Report 9502543 (Version 1)
Quarter: 2013Q3

REPORT INFORMATION
  Report Type: Spontaneous
  Country: CN (occurrence: CN)
  Receive Date: 20130906
  Receipt Date: 20130906
  Transmission Date: 20140515
  Serious: No
  Sender: FDA-Public Use
  Company Number: CN-JNJFOC-20130900514

PATIENT
  Age: 78 Year
  Sex: Male

DRUGS (1)
  1. DUROGESIC D-TRANS [Suspect]
     Indication: BACK PAIN
     Route: 062

REACTIONS (2)
  - Application site discolouration [Unknown]
  - Inappropriate schedule of drug administration [Unknown]
